FAERS Safety Report 5243733-X (Version None)
Quarter: 2007Q1

REPORT INFORMATION
  Report Type: 
  Country: None (occurrence: None)
  Receive Date: 20070222
  Receipt Date: 20070208
  Transmission Date: 20070707
  Serious: Yes (Disabling)
  Sender: FDA-Public Use
  Company Number: PHFR2007GB00750

PATIENT
  Age: 76 Year
  Sex: Female

DRUGS (2)
  1. ZOLEDRONIC ACID [Suspect]
     Indication: BREAST CANCER METASTATIC
     Dosage: 4MG
     Route: 042
     Dates: start: 20050701, end: 20060901
  2. ACETAMINOPHEN W/ CODEINE [Concomitant]
     Indication: PAIN
     Dosage: 2 DF, QID
     Route: 048

REACTIONS (1)
  - OSTEONECROSIS [None]
